FAERS Safety Report 7585607-5 (Version None)
Quarter: 2011Q2

REPORT INFORMATION
  Report Type: 
  Country: None (occurrence: None)
  Receive Date: 20110624
  Receipt Date: 20110617
  Transmission Date: 20111010
  Serious: Yes (Hospitalization)
  Sender: FDA-Public Use
  Company Number: CIP11001488

PATIENT
  Age: 70 Year
  Sex: Female

DRUGS (8)
  1. ACTONEL [Suspect]
     Indication: OSTEOPOROSIS PROPHYLAXIS
     Dosage: 17.5MG ONCE WEEKLY, ORAL
     Route: 048
     Dates: start: 20100621, end: 20110208
  2. LENDORMIN (BROIZOLAM) [Concomitant]
  3. ALL OTHER THERAPEUTIC PRODUCTS [Concomitant]
  4. LORFENAMIN (LOXOPROFEN SODIUM) [Concomitant]
  5. METHYLCOBAL (MECOBALAMIN) [Concomitant]
  6. PREDNISOLONE [Concomitant]
  7. PAREIET (RABEPRAZOLE SODIUM) [Concomitant]
  8. PROMAC (POLAPREZINC) [Concomitant]

REACTIONS (9)
  - EXPOSED BONE IN JAW [None]
  - ORAL CANDIDIASIS [None]
  - PNEUMONIA FUNGAL [None]
  - OSTEONECROSIS OF JAW [None]
  - ORAL PAIN [None]
  - GASTROINTESTINAL DISORDER [None]
  - ORAL CAVITY FISTULA [None]
  - PAIN IN JAW [None]
  - PURULENT DISCHARGE [None]
